FAERS Safety Report 9986007 (Version 1)
Quarter: 2014Q1

REPORT INFORMATION
  Report Type: Report from Study
  Country: US (occurrence: US)
  Receive Date: 20140307
  Receipt Date: 20140307
  Transmission Date: 20141002
  Serious: No
  Sender: FDA-Public Use
  Company Number: US-ABBVIE-13P-163-1089605-00

PATIENT
  Age: 52 Year
  Sex: Female

DRUGS (12)
  1. HUMIRA [Suspect]
     Indication: RHEUMATOID ARTHRITIS
     Dates: start: 20070703, end: 20130412
  2. SINGULAIR [Concomitant]
     Indication: ASTHMA
     Dosage: Q PM
  3. CELEBREX [Concomitant]
     Indication: RHEUMATOID ARTHRITIS
  4. LUCAVORIN [Concomitant]
     Indication: RHEUMATOID ARTHRITIS
     Dosage: 24 HRS AFTER METHOTREXATE
  5. RESTASIS [Concomitant]
     Indication: SJOGREN^S SYNDROME
  6. PLAQUENIL [Concomitant]
     Indication: RHEUMATOID ARTHRITIS
  7. ASTHMANEX [Concomitant]
     Indication: ASTHMA
     Dosage: 8 PUFFS BID
  8. CARAFATE [Concomitant]
     Indication: DIVERTICULITIS
  9. FORADIL [Concomitant]
     Indication: ASTHMA
  10. FOLIC ACID [Concomitant]
     Indication: PRODUCT USED FOR UNKNOWN INDICATION
     Dosage: 2 MG QD, 14 MG FRI, SAT AND SUN
  11. HORMONE REPLACEMENT PATCH [Concomitant]
     Indication: PRODUCT USED FOR UNKNOWN INDICATION
     Dosage: BIWEEKLY
  12. METHOTREXATE [Concomitant]
     Indication: RHEUMATOID ARTHRITIS

REACTIONS (7)
  - Fatigue [Unknown]
  - Anaemia [Unknown]
  - Sjogren^s syndrome [Unknown]
  - Intestinal stenosis [Unknown]
  - Diverticulitis [Unknown]
  - Asthma [Unknown]
  - Pain [Unknown]
